FAERS Safety Report 11801004 (Version 1)
Quarter: 2015Q4

REPORT INFORMATION
  Report Type: Spontaneous
  Country: US (occurrence: US)
  Receive Date: 20151204
  Receipt Date: 20151204
  Transmission Date: 20160305
  Serious: No
  Sender: FDA-Public Use
  Company Number: US-JNJFOC-20151202114

PATIENT
  Age: 48 Year
  Sex: Female
  Weight: 72.58 kg

DRUGS (1)
  1. SANDOZ FENTANYL MATRIX TRANSDERMAL SYSTEM [Suspect]
     Active Substance: FENTANYL
     Indication: NEURALGIA
     Route: 062
     Dates: start: 20151130

REACTIONS (2)
  - Wrong technique in product usage process [Unknown]
  - Product quality issue [Unknown]

NARRATIVE: CASE EVENT DATE: 20151130
